FAERS Safety Report 25485641 (Version 1)
Quarter: 2025Q2

REPORT INFORMATION
  Report Type: Spontaneous
  Country: CN (occurrence: CN)
  Receive Date: 20250626
  Receipt Date: 20250626
  Transmission Date: 20250716
  Serious: Yes (Hospitalization)
  Sender: ASTELLAS
  Company Number: CN-ASTELLAS-2025-AER-032827

PATIENT
  Age: 64 Year
  Sex: Female

DRUGS (8)
  1. XOSPATA [Suspect]
     Active Substance: GILTERITINIB
     Indication: Acute myeloid leukaemia
     Route: 048
     Dates: start: 20250305, end: 20250605
  2. ACLARUBICIN HYDROCHLORIDE [Concomitant]
     Active Substance: ACLARUBICIN HYDROCHLORIDE
     Indication: Acute myeloid leukaemia
     Dosage: 100MG D1/2/4/6/8
     Route: 042
     Dates: start: 20250207, end: 20250208
  3. ACLARUBICIN HYDROCHLORIDE [Concomitant]
     Active Substance: ACLARUBICIN HYDROCHLORIDE
     Dosage: 100MG D1/2/4/6/8
     Route: 042
     Dates: start: 20250210, end: 20250210
  4. ACLARUBICIN HYDROCHLORIDE [Concomitant]
     Active Substance: ACLARUBICIN HYDROCHLORIDE
     Dosage: 100MG D1/2/4/6/8
     Route: 042
     Dates: start: 20250212, end: 20250212
  5. ACLARUBICIN HYDROCHLORIDE [Concomitant]
     Active Substance: ACLARUBICIN HYDROCHLORIDE
     Dosage: 100MG D1/2/4/6/8
     Route: 042
     Dates: start: 20250212, end: 20250212
  6. CYTARABINE [Concomitant]
     Active Substance: CYTARABINE
     Indication: Acute myeloid leukaemia
     Dosage: 100MG D1/2/4/6/8
     Route: 042
     Dates: start: 20250207, end: 20250218
  7. VENCLEXTA [Concomitant]
     Active Substance: VENETOCLAX
     Indication: Acute myeloid leukaemia
     Dosage: 100MG D1/2/4/6/8, LOT NUMBER: THE PATIENT PREPARES HER OWN MEDICINE, DETAILS UNKNOWN.
     Route: 048
     Dates: start: 20250207, end: 20250211
  8. GRANULOCYTE COLONY-STIMULATING FACTOR NOS [Concomitant]
     Active Substance: GRANULOCYTE COLONY-STIMULATING FACTOR NOS
     Indication: Product used for unknown indication
     Route: 065
     Dates: start: 20250206

REACTIONS (3)
  - Myelosuppression [Not Recovered/Not Resolved]
  - Underdose [Unknown]
  - Off label use [Unknown]

NARRATIVE: CASE EVENT DATE: 20250305
